FAERS Safety Report 21046456 (Version 1)
Quarter: 2022Q3

REPORT INFORMATION
  Report Type: Spontaneous
  Country: US (occurrence: US)
  Receive Date: 20220706
  Receipt Date: 20220706
  Transmission Date: 20221027
  Serious: No
  Sender: FDA-Public Use
  Company Number: US-ALLERGAN-2212814US

PATIENT
  Sex: Male

DRUGS (8)
  1. UBRELVY [Suspect]
     Active Substance: UBROGEPANT
     Indication: Migraine
     Dosage: UNK
     Route: 048
  2. UBRELVY [Suspect]
     Active Substance: UBROGEPANT
     Dosage: UNK
     Route: 048
  3. SILENOR [Concomitant]
     Active Substance: DOXEPIN HYDROCHLORIDE
  4. BENADRYL CHILDREN [DEXTROMETHORPHAN HYDROBROMIDE;DIPHENHYDRAMINE HYDRO [Concomitant]
  5. TORADOL [Concomitant]
     Active Substance: KETOROLAC TROMETHAMINE
  6. NAPROXEN [Concomitant]
     Active Substance: NAPROXEN
  7. TOPIRAMATE [Concomitant]
     Active Substance: TOPIRAMATE
  8. BENADRYL ALLERGY [Concomitant]
     Active Substance: DIPHENHYDRAMINE HYDROCHLORIDE

REACTIONS (2)
  - Vomiting [Unknown]
  - Product administration error [Unknown]
